FAERS Safety Report 6287651-7 (Version None)
Quarter: 2009Q3

REPORT INFORMATION
  Report Type: 
  Country: None (occurrence: None)
  Receive Date: 20090727
  Receipt Date: 20090727
  Transmission Date: 20100115
  Serious: Yes (Other)
  Sender: FDA-Public Use
  Company Number: None

PATIENT

DRUGS (1)
  1. PHENOBARBITAL TAB [Suspect]
     Dosage: ORAL
     Route: 048

REACTIONS (2)
  - DRUG LEVEL DECREASED [None]
  - PRODUCT MEASURED POTENCY ISSUE [None]
